FAERS Safety Report 6399972-8 (Version None)
Quarter: 2009Q4

REPORT INFORMATION
  Report Type: 
  Country: None (occurrence: None)
  Receive Date: 20091014
  Receipt Date: 20091009
  Transmission Date: 20100525
  Serious: Yes (Death)
  Sender: FDA-Public Use
  Company Number: US-GILEAD-2009-0024729

PATIENT
  Sex: Male
  Weight: 87.622 kg

DRUGS (20)
  1. LETAIRIS [Suspect]
     Indication: PULMONARY ARTERIAL HYPERTENSION
     Route: 048
     Dates: start: 20070910
  2. COUMADIN [Concomitant]
  3. AMIODARONE HCL [Concomitant]
  4. DIGOXIN [Concomitant]
  5. TRICOR [Concomitant]
  6. ALDACTONE [Concomitant]
  7. LYRICA [Concomitant]
  8. REMODULIN [Concomitant]
  9. CELEXA [Concomitant]
  10. ZYRTEC [Concomitant]
  11. BUMEX [Concomitant]
  12. MULTI-VITAMINS [Concomitant]
  13. ZINC [Concomitant]
  14. SYNTHROID [Concomitant]
  15. ALPHAGAN [Concomitant]
  16. PATANOL [Concomitant]
  17. OXYCODONE /ACETAMINOPHEN  5-500 [Concomitant]
  18. POTASSIUM CHLORIDE [Concomitant]
  19. TIMOLOL GEL 0.25% [Concomitant]
  20. URISED [Concomitant]

REACTIONS (1)
  - DEATH [None]
